FAERS Safety Report 22530361 (Version 1)
Quarter: 2023Q2

REPORT INFORMATION
  Report Type: Spontaneous
  Country: CN (occurrence: CN)
  Receive Date: 20230607
  Receipt Date: 20230607
  Transmission Date: 20230722
  Serious: Yes (Other)
  Sender: FDA-Public Use
  Company Number: CN-PFIZER INC-PV202300099071

PATIENT
  Age: 66 Year
  Sex: Female
  Weight: 51.5 kg

DRUGS (3)
  1. CYTARABINE [Suspect]
     Active Substance: CYTARABINE
     Indication: Chemotherapy
     Dosage: 2500 MG, 2X/DAY
     Route: 041
     Dates: start: 20230429, end: 20230429
  2. CYTARABINE [Suspect]
     Active Substance: CYTARABINE
     Dosage: 2500 MG, 2X/DAY
     Route: 041
     Dates: start: 20230501, end: 20230501
  3. CYTARABINE [Suspect]
     Active Substance: CYTARABINE
     Dosage: 2500 MG, 2X/DAY
     Route: 041
     Dates: start: 20230503, end: 20230503

REACTIONS (1)
  - Hepatic failure [Recovered/Resolved]

NARRATIVE: CASE EVENT DATE: 20230504
